FAERS Safety Report 23261061 (Version 1)
Quarter: 2023Q4

REPORT INFORMATION
  Report Type: Spontaneous
  Country: US (occurrence: US)
  Receive Date: 20231205
  Receipt Date: 20231205
  Transmission Date: 20240110
  Serious: No
  Sender: FDA-Public Use
  Company Number: US-CELLTRION INC.-2023US002811

PATIENT

DRUGS (1)
  1. TRUXIMA [Suspect]
     Active Substance: RITUXIMAB-ABBS
     Indication: Rheumatoid arthritis
     Dosage: PRESCRIBED WITH 04 VIALS AND USED 2 VIALS
     Dates: start: 20230130

REACTIONS (5)
  - Laryngospasm [Unknown]
  - Bronchospasm [Unknown]
  - Dyspnoea [Unknown]
  - Swollen tongue [Unknown]
  - Chills [Unknown]

NARRATIVE: CASE EVENT DATE: 20230130
